FAERS Safety Report 9962940 (Version 1)
Quarter: 2014Q1

REPORT INFORMATION
  Report Type: Other
  Country: US (occurrence: US)
  Receive Date: 20140305
  Receipt Date: 20140305
  Transmission Date: 20141002
  Serious: Yes (Death)
  Sender: FDA-Public Use
  Company Number: US-FRI-1000054894

PATIENT
  Age: 38 Year
  Sex: Female

DRUGS (10)
  1. CITALOPRAM [Suspect]
  2. ATENOLOL [Suspect]
  3. DULOXETINE [Suspect]
  4. CLONIDINE [Suspect]
  5. LAMOTRIGINE [Suspect]
  6. GABAPENTIN [Suspect]
  7. CLONAZEPAM [Suspect]
  8. METAXALONE [Suspect]
  9. HYDROXYZINE [Suspect]
  10. CAFFEINE [Suspect]

REACTIONS (1)
  - Completed suicide [Fatal]
